FAERS Safety Report 4541721-X (Version None)
Quarter: 2004Q4

REPORT INFORMATION
  Report Type: 
  Country: None (occurrence: None)
  Receive Date: 20041227
  Receipt Date: 20041217
  Transmission Date: 20050328
  Serious: Yes (Hospitalization)
  Sender: FDA-Public Use
  Company Number: 310003M04ESP

PATIENT
  Sex: Female

DRUGS (1)
  1. GONAL-F [Suspect]
     Indication: OVARIAN DISORDER
     Dosage: 1050 IU, 1 IN 1, ONCE
     Dates: start: 20041101, end: 20041101

REACTIONS (5)
  - ABDOMINAL PAIN [None]
  - ACCIDENTAL OVERDOSE [None]
  - ANXIETY [None]
  - DYSPNOEA [None]
  - MEDICATION ERROR [None]
